FAERS Safety Report 20213694 (Version 3)
Quarter: 2022Q1

REPORT INFORMATION
  Report Type: Report from Study
  Country: HK (occurrence: HK)
  Receive Date: 20211221
  Receipt Date: 20220114
  Transmission Date: 20220424
  Serious: Yes (Hospitalization)
  Sender: FDA-Public Use
  Company Number: HK-PFIZER INC-202101752551

PATIENT
  Age: 56 Year
  Sex: Female
  Weight: 71.3 kg

DRUGS (20)
  1. AVELUMAB [Suspect]
     Active Substance: AVELUMAB
     Indication: Squamous cell carcinoma of the cervix
     Dosage: 10 MG/KG, CYCLIC (Q2W)
     Route: 042
     Dates: start: 20210818
  2. AXITINIB [Suspect]
     Active Substance: AXITINIB
     Indication: Squamous cell carcinoma of the cervix
     Dosage: 5 MG, 2X/DAY
     Route: 048
     Dates: start: 20210818, end: 20210901
  3. AXITINIB [Suspect]
     Active Substance: AXITINIB
     Dosage: 5 MG, 2X/DAY
     Route: 048
     Dates: start: 20210920, end: 20210929
  4. AXITINIB [Suspect]
     Active Substance: AXITINIB
     Dosage: 3 MG, 2X/DAY
     Route: 048
     Dates: start: 20211012, end: 20211206
  5. ACETAMINOPHEN [Concomitant]
     Active Substance: ACETAMINOPHEN
     Indication: Premedication
     Dosage: UNK
     Route: 048
     Dates: start: 20210818
  6. ACETAMINOPHEN [Concomitant]
     Active Substance: ACETAMINOPHEN
     Indication: Gastroenteritis
     Dosage: UNK
     Route: 048
     Dates: start: 20211129, end: 20211205
  7. DIPHENHYDRAMINE [Concomitant]
     Active Substance: DIPHENHYDRAMINE
     Indication: Premedication
     Dosage: UNK
     Route: 042
     Dates: start: 20210818
  8. ESCITALOPRAM [Concomitant]
     Active Substance: ESCITALOPRAM OXALATE
     Indication: Depression
     Dosage: UNK
     Route: 048
     Dates: start: 20181218
  9. LORAZEPAM [Concomitant]
     Active Substance: LORAZEPAM
     Indication: Depression
     Dosage: UNK
     Route: 048
     Dates: start: 20181218
  10. HYOSCINE METHOBROMIDE [Concomitant]
     Indication: Diarrhoea
     Dosage: UNK
     Route: 048
     Dates: start: 20211129, end: 20211204
  11. HYOSCINE METHOBROMIDE [Concomitant]
     Indication: Gastroenteritis
  12. FAMOTIDINE [Concomitant]
     Active Substance: FAMOTIDINE
     Indication: Diarrhoea
     Dosage: UNK
     Route: 048
     Dates: start: 20211129, end: 20211206
  13. FAMOTIDINE [Concomitant]
     Active Substance: FAMOTIDINE
     Indication: Gastroenteritis
  14. EMULSIFYING OINTMENT BP [Concomitant]
     Indication: Hand-foot-and-mouth disease
     Dosage: UNK
     Route: 061
     Dates: start: 20211129, end: 20211203
  15. NEOMYCIN SULFATE [Concomitant]
     Active Substance: NEOMYCIN SULFATE
     Indication: Hand-foot-and-mouth disease
     Dosage: UNK
     Route: 061
     Dates: start: 20211206
  16. AMLODIPINE [Concomitant]
     Active Substance: AMLODIPINE BESYLATE
     Indication: Hypertension
     Dosage: UNK
     Route: 048
     Dates: start: 20211110
  17. ZINC CREAM [Concomitant]
     Indication: Diarrhoea
     Dosage: UNK
     Route: 061
     Dates: start: 20211129, end: 20211202
  18. ZINC CREAM [Concomitant]
     Indication: Gastroenteritis
  19. IBUPROFEN [Concomitant]
     Active Substance: IBUPROFEN
     Indication: Diarrhoea
     Dosage: UNK
     Route: 048
     Dates: start: 20211129, end: 20211205
  20. IBUPROFEN [Concomitant]
     Active Substance: IBUPROFEN
     Indication: Gastroenteritis

REACTIONS (2)
  - Electrocardiogram abnormal [Recovered/Resolved]
  - Thyroiditis [Recovering/Resolving]

NARRATIVE: CASE EVENT DATE: 20211208
